FAERS Safety Report 13023415 (Version 1)
Quarter: 2016Q4

REPORT INFORMATION
  Report Type: Report from Study
  Country: US (occurrence: US)
  Receive Date: 20161213
  Receipt Date: 20161213
  Transmission Date: 20170207
  Serious: Yes (Other)
  Sender: FDA-Public Use
  Company Number: US-GILEAD-2016-0238474

PATIENT
  Age: 60 Year
  Sex: Male

DRUGS (1)
  1. LEDIPASVIR/SOFOSBUVIR [Suspect]
     Active Substance: LEDIPASVIR\SOFOSBUVIR
     Indication: CHRONIC HEPATITIS C
     Dosage: 1 DF, UNK
     Route: 048
     Dates: start: 2016, end: 2016

REACTIONS (4)
  - Hepatic cirrhosis [Not Recovered/Not Resolved]
  - Neoplasm malignant [Unknown]
  - Treatment failure [Unknown]
  - Pulmonary resection [Unknown]
